FAERS Safety Report 24900005 (Version 2)
Quarter: 2025Q1

REPORT INFORMATION
  Report Type: Spontaneous
  Country: DE (occurrence: DE)
  Receive Date: 20250129
  Receipt Date: 20250325
  Transmission Date: 20250408
  Serious: Yes (Hospitalization)
  Sender: ELI LILLY AND COMPANY
  Company Number: DE-ELI_LILLY_AND_COMPANY-DE202501018243

PATIENT
  Age: 76 Year
  Sex: Female

DRUGS (8)
  1. LEBRIKIZUMAB [Suspect]
     Active Substance: LEBRIKIZUMAB
     Indication: Product used for unknown indication
     Route: 065
     Dates: start: 20241021
  2. LEBRIKIZUMAB [Suspect]
     Active Substance: LEBRIKIZUMAB
     Route: 065
     Dates: start: 20241030
  3. LEBRIKIZUMAB [Suspect]
     Active Substance: LEBRIKIZUMAB
     Route: 065
     Dates: start: 20241230, end: 20241230
  4. EBASTINE [Suspect]
     Active Substance: EBASTINE
     Indication: Product used for unknown indication
     Route: 065
  5. CANDESARTAN [Concomitant]
     Active Substance: CANDESARTAN
     Indication: Product used for unknown indication
     Dosage: 12 MG, DAILY (8 MG, 1-0-1/2)
     Route: 065
  6. ASPIRIN [Concomitant]
     Active Substance: ASPIRIN
     Indication: Product used for unknown indication
     Dosage: 100 (UNIT UNKNOWN), ONCE DAILY
     Route: 065
  7. CARBIDOPA AND LEVODOPA [Concomitant]
     Active Substance: CARBIDOPA\LEVODOPA
     Indication: Product used for unknown indication
     Dosage: LEVODOPA (100MG)/CARBIDOPA (25 MG), TID (1-1-1)
     Route: 065
  8. ATORVASTATIN CALCIUM [Concomitant]
     Active Substance: ATORVASTATIN CALCIUM
     Indication: Product used for unknown indication
     Dosage: 10 MG, ONCE DAILY
     Route: 065

REACTIONS (1)
  - Drug-induced liver injury [Recovering/Resolving]
